FAERS Safety Report 4692423-0 (Version None)
Quarter: 2005Q2

REPORT INFORMATION
  Report Type: 
  Country: None (occurrence: None)
  Receive Date: 20050615
  Receipt Date: 20050607
  Transmission Date: 20051028
  Serious: Yes (Other)
  Sender: FDA-Public Use
  Company Number: 2005031464

PATIENT
  Age: 38 Year
  Sex: Male
  Weight: 95 kg

DRUGS (1)
  1. TAHOR(ATORVASTATIN) [Suspect]
     Indication: DYSLIPIDAEMIA
     Dosage: 40 MG DAILY ORAL
     Route: 048
     Dates: start: 20020418, end: 20050126

REACTIONS (3)
  - LIGAMENT INJURY [None]
  - MUSCLE RUPTURE [None]
  - TENDON RUPTURE [None]
